FAERS Safety Report 17080373 (Version 1)
Quarter: 2019Q4

REPORT INFORMATION
  Report Type: Spontaneous
  Country: GB (occurrence: GB)
  Receive Date: 20191127
  Receipt Date: 20191127
  Transmission Date: 20200122
  Serious: Yes (Other)
  Sender: FDA-Public Use
  Company Number: GB-TEVA-2019-GB-1141764

PATIENT
  Age: 74 Year
  Sex: Male
  Weight: 79.37 kg

DRUGS (4)
  1. RAMIPRIL. [Suspect]
     Active Substance: RAMIPRIL
     Indication: HYPERTENSION
     Dosage: 10 MG
     Route: 048
     Dates: end: 20191017
  2. DRIED FERROUS SULFATE [Concomitant]
     Dosage: 200 MG
  3. RAMIPRIL. [Suspect]
     Active Substance: RAMIPRIL
     Dosage: ALREADY TAKING 10 MGS, INCREASED TO 12.5MGS ON 17TH OCTOBER, 2019.
     Route: 048
     Dates: start: 20191017, end: 20191018
  4. OMEPRAZOLE. [Concomitant]
     Active Substance: OMEPRAZOLE
     Dosage: 20 MG

REACTIONS (2)
  - Tinnitus [Not Recovered/Not Resolved]
  - Hypoacusis [Not Recovered/Not Resolved]

NARRATIVE: CASE EVENT DATE: 20191018
